FAERS Safety Report 7656637-X (Version None)
Quarter: 2011Q3

REPORT INFORMATION
  Report Type: 
  Country: None (occurrence: None)
  Receive Date: 20110804
  Receipt Date: 20110725
  Transmission Date: 20111222
  Serious: Yes (Other)
  Sender: FDA-Public Use
  Company Number: GB-ALLERGAN-1110035US

PATIENT
  Age: 48 Year
  Sex: Female

DRUGS (2)
  1. BLINKAWAY [Concomitant]
     Indication: DRY EYE
  2. CELLUVISCA? [Suspect]
     Indication: DRY EYE
     Dosage: UNK
     Route: 047

REACTIONS (9)
  - MENTAL DISORDER [None]
  - EYELID DISORDER [None]
  - HYPERHIDROSIS [None]
  - PERIORBITAL HAEMATOMA [None]
  - MADAROSIS [None]
  - EYE DISCHARGE [None]
  - NIGHTMARE [None]
  - EYE DISORDER [None]
  - EYE SWELLING [None]
